FAERS Safety Report 16841976 (Version 1)
Quarter: 2019Q3

REPORT INFORMATION
  Report Type: Spontaneous
  Country: US (occurrence: US)
  Receive Date: 20190923
  Receipt Date: 20190923
  Transmission Date: 20191005
  Serious: Yes (Death, Other)
  Sender: FDA-Public Use
  Company Number: US-LA JOLLA PHARMACEUTICAL COMPANY-0000321

PATIENT

DRUGS (3)
  1. GIAPREZA [Suspect]
     Active Substance: ANGIOTENSIN II
     Indication: SHOCK
     Dosage: 55 NG/KG/MIN, UNK
  2. NOREPINEPHRINE. [Concomitant]
     Active Substance: NOREPINEPHRINE
     Indication: SEPSIS
  3. NOREPINEPHRINE. [Concomitant]
     Active Substance: NOREPINEPHRINE
     Indication: VASOPLEGIA SYNDROME

REACTIONS (4)
  - Thrombocytopenia [Unknown]
  - Death [Fatal]
  - Transaminases increased [Unknown]
  - Embolism venous [Unknown]

NARRATIVE: CASE EVENT DATE: 201802
